FAERS Safety Report 9850611 (Version 1)
Quarter: 2014Q1

REPORT INFORMATION
  Report Type: Report from Study
  Country: US (occurrence: US)
  Receive Date: 20140128
  Receipt Date: 20140128
  Transmission Date: 20141002
  Serious: Yes (Other)
  Sender: FDA-Public Use
  Company Number: US-CELGENEUS-163-21880-14013172

PATIENT
  Age: 48 Year
  Sex: Female

DRUGS (3)
  1. REVLIMID [Suspect]
     Indication: PLASMA CELL MYELOMA
     Dosage: 25 MG
     Route: 048
  2. REVLIMID [Suspect]
     Route: 048
  3. ASPIRIN [Concomitant]
     Indication: THROMBOSIS PROPHYLAXIS
     Dosage: 81MG-325MG
     Route: 065

REACTIONS (2)
  - Acute graft versus host disease [Unknown]
  - Graft versus host disease [Unknown]
